FAERS Safety Report 21662202 (Version 8)
Quarter: 2023Q2

REPORT INFORMATION
  Report Type: Report from Study
  Country: US (occurrence: US)
  Receive Date: 20221130
  Receipt Date: 20230513
  Transmission Date: 20230722
  Serious: No
  Sender: FDA-Public Use
  Company Number: US-002147023-NVSC2022US277554

PATIENT
  Sex: Female

DRUGS (1)
  1. COSENTYX [Suspect]
     Active Substance: SECUKINUMAB
     Indication: Psoriatic arthropathy
     Dosage: 300 MG, QMO
     Route: 058
     Dates: start: 202211

REACTIONS (7)
  - Sleep disorder [Unknown]
  - Fatigue [Unknown]
  - Parosmia [Unknown]
  - Injection site bruising [Unknown]
  - Dry mouth [Unknown]
  - Ageusia [Unknown]
  - Paraesthesia [Unknown]
